FAERS Safety Report 25298944 (Version 1)
Quarter: 2025Q2

REPORT INFORMATION
  Report Type: Spontaneous
  Country: US (occurrence: US)
  Receive Date: 20250512
  Receipt Date: 20250512
  Transmission Date: 20250717
  Serious: Yes (Other)
  Sender: CHATTEM
  Company Number: US-OPELLA-2025OHG013073

PATIENT
  Sex: Female

DRUGS (2)
  1. GOLD BOND ORIGINAL STRENGTH [Suspect]
     Active Substance: MENTHOL
     Indication: Product used for unknown indication
     Route: 065
  2. DOSTINEX [Concomitant]
     Active Substance: CABERGOLINE
     Indication: Product used for unknown indication
     Dosage: TAKE 1 TABLET (0.5 MG) BY MOUTH 2 (TWO) TIMES A WEEK MTH
     Route: 048
     Dates: start: 19970709

REACTIONS (3)
  - Pleural mesothelioma malignant [Unknown]
  - Asbestosis [Unknown]
  - Exposure to chemical pollution [Unknown]

NARRATIVE: CASE EVENT DATE: 20240530
